FAERS Safety Report 12410697 (Version 1)
Quarter: 2016Q2

REPORT INFORMATION
  Report Type: Spontaneous
  Country: US (occurrence: None)
  Receive Date: 20160526
  Receipt Date: 20160526
  Transmission Date: 20160815
  Serious: Yes (Other)
  Sender: FDA-Public Use
  Company Number: None

PATIENT
  Age: 44 Year
  Sex: Female

DRUGS (6)
  1. AMPYRA [Suspect]
     Active Substance: DALFAMPRIDINE
     Indication: MULTIPLE SCLEROSIS
     Route: 048
     Dates: start: 20160315
  2. BUTALBITAL/APAP/CAFF [Concomitant]
  3. METHENAMINE [Concomitant]
     Active Substance: METHENAMINE
  4. IBUPROFEN. [Concomitant]
     Active Substance: IBUPROFEN
  5. TRIAMCINOLONE [Concomitant]
     Active Substance: TRIAMCINOLONE
  6. BACLOFEN. [Concomitant]
     Active Substance: BACLOFEN

REACTIONS (2)
  - Urine odour abnormal [None]
  - Pollakiuria [None]

NARRATIVE: CASE EVENT DATE: 20160516
